FAERS Safety Report 16601560 (Version 2)
Quarter: 2019Q3

REPORT INFORMATION
  Report Type: Spontaneous
  Country: JP (occurrence: JP)
  Receive Date: 20190719
  Receipt Date: 20190821
  Transmission Date: 20191004
  Serious: Yes (Death, Life-Threatening)
  Sender: FDA-Public Use
  Company Number: JP-JNJFOC-20190724801

PATIENT
  Age: 58 Year
  Sex: Male

DRUGS (84)
  1. MIGLITOL OD [Concomitant]
     Indication: TYPE 2 DIABETES MELLITUS
     Route: 048
     Dates: start: 20190424, end: 20190427
  2. LOXOPROFEN [Concomitant]
     Active Substance: LOXOPROFEN
     Indication: PAIN
  3. SOLDEM 3A [Concomitant]
     Active Substance: CARBOHYDRATES\POTASSIUM CHLORIDE\SODIUM CHLORIDE\SODIUM LACTATE
     Route: 041
     Dates: start: 20190426, end: 20190426
  4. SOLDEM 3A [Concomitant]
     Active Substance: CARBOHYDRATES\POTASSIUM CHLORIDE\SODIUM CHLORIDE\SODIUM LACTATE
     Route: 041
     Dates: start: 20190427, end: 20190427
  5. E KEPPRA [Concomitant]
     Active Substance: LEVETIRACETAM
     Indication: EPILEPSY
  6. E KEPPRA [Concomitant]
     Active Substance: LEVETIRACETAM
     Indication: SEIZURE PROPHYLAXIS
     Route: 048
     Dates: start: 20190423, end: 20190508
  7. E KEPPRA [Concomitant]
     Active Substance: LEVETIRACETAM
     Indication: SEIZURE PROPHYLAXIS
  8. FUROSEMIDE. [Concomitant]
     Active Substance: FUROSEMIDE
     Indication: PULMONARY OEDEMA
     Route: 042
     Dates: start: 20190416, end: 20190416
  9. CEFAZOLIN NA [Concomitant]
     Active Substance: CEFAZOLIN SODIUM
     Route: 041
     Dates: start: 20190413, end: 20190413
  10. SEISHOKU [Concomitant]
     Active Substance: SODIUM CHLORIDE
     Route: 041
     Dates: start: 20190415, end: 20190422
  11. KCL CORRECTIVE [Concomitant]
     Indication: HYPOKALAEMIA
     Route: 041
     Dates: start: 20190501, end: 20190506
  12. LOXOPROFEN [Concomitant]
     Active Substance: LOXOPROFEN
     Indication: PYREXIA
     Route: 048
  13. SOLDEM 3A [Concomitant]
     Active Substance: CARBOHYDRATES\POTASSIUM CHLORIDE\SODIUM CHLORIDE\SODIUM LACTATE
     Indication: FLUID REPLACEMENT
     Route: 041
     Dates: start: 20190426, end: 20190426
  14. SOLDEM 3A [Concomitant]
     Active Substance: CARBOHYDRATES\POTASSIUM CHLORIDE\SODIUM CHLORIDE\SODIUM LACTATE
     Route: 041
     Dates: start: 20190509, end: 20190509
  15. E KEPPRA [Concomitant]
     Active Substance: LEVETIRACETAM
     Indication: SEIZURE PROPHYLAXIS
     Route: 048
     Dates: start: 20190416, end: 20190422
  16. E KEPPRA [Concomitant]
     Active Substance: LEVETIRACETAM
     Indication: SEIZURE PROPHYLAXIS
  17. TENELIA [Suspect]
     Active Substance: TENELIGLIPTIN
     Route: 048
     Dates: start: 20190501, end: 20190509
  18. E KEPPRA [Concomitant]
     Active Substance: LEVETIRACETAM
     Route: 041
     Dates: start: 20190414, end: 20190415
  19. SOLDEM 3A [Concomitant]
     Active Substance: CARBOHYDRATES\POTASSIUM CHLORIDE\SODIUM CHLORIDE\SODIUM LACTATE
     Route: 041
     Dates: start: 20190419, end: 20190421
  20. AMLODIPINE [Concomitant]
     Active Substance: AMLODIPINE BESYLATE
     Route: 048
     Dates: start: 20190425, end: 20190427
  21. LANSOPRAZOLE. [Concomitant]
     Active Substance: LANSOPRAZOLE
     Route: 048
     Dates: start: 20190502, end: 20190509
  22. METGLUCO [Concomitant]
     Active Substance: METFORMIN HYDROCHLORIDE
     Route: 048
     Dates: start: 20190422, end: 20190422
  23. SOLDEM 3A [Concomitant]
     Active Substance: CARBOHYDRATES\POTASSIUM CHLORIDE\SODIUM CHLORIDE\SODIUM LACTATE
     Route: 041
     Dates: start: 20190419, end: 20190421
  24. FUROSEMIDE. [Concomitant]
     Active Substance: FUROSEMIDE
     Indication: HYPERTENSION
     Route: 048
     Dates: start: 20190421, end: 20190421
  25. CEFAZOLIN NA [Concomitant]
     Active Substance: CEFAZOLIN SODIUM
     Route: 041
     Dates: start: 20190415, end: 20190415
  26. SEISHOKU [Concomitant]
     Active Substance: SODIUM CHLORIDE
     Route: 041
     Dates: start: 20190413, end: 20190413
  27. SEISHOKU [Concomitant]
     Active Substance: SODIUM CHLORIDE
     Route: 041
     Dates: start: 20190428, end: 20190428
  28. NICARDIPINE HYDROCHLORIDE. [Concomitant]
     Active Substance: NICARDIPINE HYDROCHLORIDE
     Route: 041
     Dates: start: 20190414, end: 20190415
  29. HUMULIN R [Concomitant]
     Active Substance: INSULIN HUMAN
     Indication: DIABETES MELLITUS MANAGEMENT
     Route: 058
     Dates: start: 20190414, end: 20190509
  30. FLUITRAN [Concomitant]
     Active Substance: TRICHLORMETHIAZIDE
     Indication: HYPERTENSION
     Route: 048
     Dates: start: 20190418, end: 20190427
  31. NOVORAPID [Concomitant]
     Active Substance: INSULIN ASPART
     Indication: DIABETES MELLITUS MANAGEMENT
     Route: 058
     Dates: start: 20190419, end: 20190423
  32. SOLDEM 1 [Concomitant]
     Active Substance: DEXTROSE\SODIUM CHLORIDE\SODIUM LACTATE
     Route: 041
     Dates: start: 20190502, end: 20190505
  33. DICLOFENAC SODIUM. [Concomitant]
     Active Substance: DICLOFENAC SODIUM
     Indication: PAIN
  34. E KEPPRA [Concomitant]
     Active Substance: LEVETIRACETAM
     Indication: EPILEPSY
     Route: 048
     Dates: start: 20190509, end: 20190509
  35. FUROSEMIDE. [Concomitant]
     Active Substance: FUROSEMIDE
     Indication: CARDIAC FAILURE CONGESTIVE
     Route: 042
     Dates: start: 20190415, end: 20190415
  36. CANAGLIFLOZIN [Suspect]
     Active Substance: CANAGLIFLOZIN
     Route: 048
     Dates: start: 20190501, end: 20190502
  37. CEFAZOLIN NA [Concomitant]
     Active Substance: CEFAZOLIN SODIUM
     Route: 041
     Dates: start: 20190414, end: 20190414
  38. ACELIO [Concomitant]
     Active Substance: ACETAMINOPHEN
     Indication: GENERAL ANAESTHESIA
     Route: 041
     Dates: start: 20190413, end: 20190413
  39. E KEPPRA [Concomitant]
     Active Substance: LEVETIRACETAM
     Indication: SEIZURE PROPHYLAXIS
     Route: 041
     Dates: start: 20190413, end: 20190413
  40. OMEPRAZOLE. [Concomitant]
     Active Substance: OMEPRAZOLE
     Route: 041
     Dates: start: 20190414, end: 20190415
  41. OLMESARTAN OD [Concomitant]
     Active Substance: OLMESARTAN MEDOXOMIL
     Route: 048
     Dates: start: 20190423, end: 20190427
  42. SULBACILLIN [Concomitant]
     Active Substance: AMPICILLIN SODIUM\SULBACTAM SODIUM
     Indication: PNEUMONIA ASPIRATION
     Route: 041
     Dates: start: 20190415, end: 20190415
  43. SULBACILLIN [Concomitant]
     Active Substance: AMPICILLIN SODIUM\SULBACTAM SODIUM
     Route: 041
     Dates: start: 20190416, end: 20190422
  44. ASPARA POTASSIUM [Concomitant]
     Active Substance: POTASSIUM ASPARTATE
     Indication: HYPOKALAEMIA
     Route: 048
     Dates: start: 20190416, end: 20190416
  45. TRESIBA [Concomitant]
     Active Substance: INSULIN DEGLUDEC
     Indication: DIABETES MELLITUS MANAGEMENT
     Route: 058
     Dates: start: 20190419, end: 20190508
  46. E KEPPRA [Concomitant]
     Active Substance: LEVETIRACETAM
     Indication: SEIZURE PROPHYLAXIS
  47. CEFAZOLIN NA [Concomitant]
     Active Substance: CEFAZOLIN SODIUM
     Indication: GENERAL ANAESTHESIA
     Route: 041
     Dates: start: 20190413, end: 20190413
  48. OMEPRAZOLE. [Concomitant]
     Active Substance: OMEPRAZOLE
     Indication: PROPHYLAXIS AGAINST GASTROINTESTINAL ULCER
     Route: 041
     Dates: start: 20190413, end: 20190413
  49. SEISHOKU [Concomitant]
     Active Substance: SODIUM CHLORIDE
     Route: 041
     Dates: start: 20190429, end: 20190501
  50. ASPARA POTASSIUM [Concomitant]
     Active Substance: POTASSIUM ASPARTATE
     Route: 048
     Dates: start: 20190417, end: 20190422
  51. METGLUCO [Concomitant]
     Active Substance: METFORMIN HYDROCHLORIDE
     Indication: TYPE 2 DIABETES MELLITUS
     Route: 048
     Dates: start: 20190418, end: 20190421
  52. DOXAZOSIN [Concomitant]
     Active Substance: DOXAZOSIN MESYLATE
     Route: 048
     Dates: start: 20190423, end: 20190423
  53. SOLDEM 1 [Concomitant]
     Active Substance: DEXTROSE\SODIUM CHLORIDE\SODIUM LACTATE
     Indication: HYPERNATRAEMIA
     Route: 041
     Dates: start: 20190501, end: 20190501
  54. SOLDEM 3A [Concomitant]
     Active Substance: CARBOHYDRATES\POTASSIUM CHLORIDE\SODIUM CHLORIDE\SODIUM LACTATE
     Route: 041
     Dates: start: 20190507, end: 20190508
  55. E KEPPRA [Concomitant]
     Active Substance: LEVETIRACETAM
     Indication: SEIZURE PROPHYLAXIS
  56. SEISHOKU [Concomitant]
     Active Substance: SODIUM CHLORIDE
     Route: 041
     Dates: start: 20190414, end: 20190415
  57. SOLDEM 3A [Concomitant]
     Active Substance: CARBOHYDRATES\POTASSIUM CHLORIDE\SODIUM CHLORIDE\SODIUM LACTATE
     Indication: FLUID REPLACEMENT
     Route: 041
     Dates: start: 20190414, end: 20190418
  58. AMLODIPINE [Concomitant]
     Active Substance: AMLODIPINE BESYLATE
     Route: 048
     Dates: start: 20190417, end: 20190424
  59. OLMESARTAN OD [Concomitant]
     Active Substance: OLMESARTAN MEDOXOMIL
     Indication: HYPERTENSION
     Route: 048
     Dates: start: 20190415, end: 20190422
  60. ASPARA POTASSIUM [Concomitant]
     Active Substance: POTASSIUM ASPARTATE
     Route: 048
     Dates: start: 20190423, end: 20190423
  61. DOXAZOSIN [Concomitant]
     Active Substance: DOXAZOSIN MESYLATE
     Indication: HYPERTENSION
     Route: 048
     Dates: start: 20190419, end: 20190422
  62. SEPAMIT [Concomitant]
     Active Substance: NIFEDIPINE
     Indication: HYPERTENSION
     Route: 048
  63. CALONAL [Concomitant]
     Active Substance: ACETAMINOPHEN
     Indication: PAIN
  64. CANAGLIFLOZIN [Suspect]
     Active Substance: CANAGLIFLOZIN
     Route: 048
     Dates: start: 20190508, end: 20190509
  65. TENELIA [Suspect]
     Active Substance: TENELIGLIPTIN
     Indication: TYPE 2 DIABETES MELLITUS
     Route: 048
     Dates: start: 20190423, end: 20190427
  66. HERBESSER [Suspect]
     Active Substance: DILTIAZEM HYDROCHLORIDE
     Indication: GENERAL ANAESTHESIA
     Route: 042
     Dates: start: 20190413, end: 20190413
  67. OMEPRAZOLE. [Concomitant]
     Active Substance: OMEPRAZOLE
     Route: 041
     Dates: start: 20190414, end: 20190428
  68. LANSOPRAZOLE. [Concomitant]
     Active Substance: LANSOPRAZOLE
     Indication: PROPHYLAXIS AGAINST GASTROINTESTINAL ULCER
     Route: 048
     Dates: start: 20190416, end: 20190424
  69. NOVORAPID [Concomitant]
     Active Substance: INSULIN ASPART
     Route: 058
     Dates: start: 20190501, end: 20190508
  70. MIGLITOL OD [Concomitant]
     Route: 048
     Dates: start: 20190508, end: 20190509
  71. SOLDEM 1 [Concomitant]
     Active Substance: DEXTROSE\SODIUM CHLORIDE\SODIUM LACTATE
     Route: 041
     Dates: start: 20190506, end: 20190506
  72. SOLDEM 1 [Concomitant]
     Active Substance: DEXTROSE\SODIUM CHLORIDE\SODIUM LACTATE
     Route: 041
     Dates: start: 20190509, end: 20190509
  73. PICOSULFATE NA [Concomitant]
     Active Substance: SODIUM PICOSULFATE
     Indication: CONSTIPATION
     Route: 048
  74. DICLOFENAC SODIUM. [Concomitant]
     Active Substance: DICLOFENAC SODIUM
     Indication: PYREXIA
     Route: 054
  75. CALONAL [Concomitant]
     Active Substance: ACETAMINOPHEN
     Indication: PYREXIA
     Route: 048
  76. SOLDEM 3A [Concomitant]
     Active Substance: CARBOHYDRATES\POTASSIUM CHLORIDE\SODIUM CHLORIDE\SODIUM LACTATE
     Route: 041
     Dates: start: 20190422, end: 20190423
  77. FUROSEMIDE. [Concomitant]
     Active Substance: FUROSEMIDE
     Indication: POLYURIA
     Route: 048
     Dates: start: 20190416, end: 20190419
  78. CANAGLIFLOZIN [Suspect]
     Active Substance: CANAGLIFLOZIN
     Indication: TYPE 2 DIABETES MELLITUS
     Route: 048
     Dates: start: 20190422, end: 20190427
  79. ACELIO [Concomitant]
     Active Substance: ACETAMINOPHEN
     Indication: PYREXIA
     Route: 041
     Dates: start: 20190414, end: 20190414
  80. ACELIO [Concomitant]
     Active Substance: ACETAMINOPHEN
     Indication: ANALGESIC THERAPY
  81. OMEPRAZOLE. [Concomitant]
     Active Substance: OMEPRAZOLE
     Route: 041
     Dates: start: 20190429, end: 20190501
  82. SEISHOKU [Concomitant]
     Active Substance: SODIUM CHLORIDE
     Route: 041
     Dates: start: 20190413, end: 20190415
  83. NICARDIPINE HYDROCHLORIDE. [Concomitant]
     Active Substance: NICARDIPINE HYDROCHLORIDE
     Indication: BLOOD PRESSURE INCREASED
     Route: 041
     Dates: start: 20190413, end: 20190413
  84. SOLDEM 3A [Concomitant]
     Active Substance: CARBOHYDRATES\POTASSIUM CHLORIDE\SODIUM CHLORIDE\SODIUM LACTATE
     Route: 041
     Dates: start: 20190422, end: 20190423

REACTIONS (4)
  - Shock [Recovering/Resolving]
  - Diarrhoea [Fatal]
  - Hyperglycaemia [Recovering/Resolving]
  - Pyrexia [Fatal]

NARRATIVE: CASE EVENT DATE: 20190428
